FAERS Safety Report 9288468 (Version 1)
Quarter: 2013Q2

REPORT INFORMATION
  Report Type: Spontaneous
  Country: GB (occurrence: GB)
  Receive Date: 20130514
  Receipt Date: 20130514
  Transmission Date: 20140414
  Serious: Yes (Other)
  Sender: FDA-Public Use
  Company Number: GB-ELI_LILLY_AND_COMPANY-GB201305000592

PATIENT
  Age: 48 Year
  Sex: Male
  Weight: 81 kg

DRUGS (4)
  1. OLANZAPINE [Suspect]
     Indication: PSYCHOTIC DISORDER
     Dosage: 20 MG, UNKNOWN
     Route: 048
     Dates: start: 20130321, end: 20130423
  2. FLUOXETINE [Concomitant]
     Dosage: 1 DF, UNKNOWN
  3. DIAZEPAM [Concomitant]
     Dosage: 1 DF, UNKNOWN
  4. LORAZEPAM [Concomitant]
     Dosage: 1 DF, UNKNOWN

REACTIONS (1)
  - Deep vein thrombosis [Recovering/Resolving]
